FAERS Safety Report 5690676-3 (Version None)
Quarter: 2008Q1

REPORT INFORMATION
  Report Type: 
  Country: None (occurrence: None)
  Receive Date: 20080331
  Receipt Date: 20080331
  Transmission Date: 20080703
  Serious: Yes (Other)
  Sender: FDA-Public Use
  Company Number: None

PATIENT
  Age: 23 Year
  Sex: Female
  Weight: 68.0396 kg

DRUGS (3)
  1. SINGULAIR [Suspect]
     Indication: ALLERGY TO ANIMAL
     Dosage: 1 PILL/DAY APPROX. 2 AND 1/2 YEARS
  2. ZYRTEC [Suspect]
     Indication: ALLERGY TO ANIMAL
     Dosage: 1 PILL/DAY APPROX. 2 AND 1/2 YEARS
  3. ZYRTEC [Suspect]
     Indication: SEASONAL ALLERGY
     Dosage: 1 PILL/DAY APPROX. 2 AND 1/2 YEARS

REACTIONS (3)
  - ANXIETY DISORDER [None]
  - CLAUSTROPHOBIA [None]
  - STRESS [None]
